FAERS Safety Report 22285823 (Version 1)
Quarter: 2023Q2

REPORT INFORMATION
  Report Type: Report from Study
  Country: BR (occurrence: BR)
  Receive Date: 20230504
  Receipt Date: 20230504
  Transmission Date: 20230721
  Serious: Yes (Other)
  Sender: FDA-Public Use
  Company Number: BR-CELLTRION INC.-2022BR021479

PATIENT

DRUGS (4)
  1. INFLIXIMAB [Suspect]
     Active Substance: INFLIXIMAB
     Indication: Crohn^s disease
     Dosage: 5 AMPOULES EVERY 4 WEEKS
     Route: 042
     Dates: start: 2022
  2. AZATHIOPRINE [Concomitant]
     Active Substance: AZATHIOPRINE
     Indication: Crohn^s disease
     Dosage: 3 CAPSULES A DAY
     Route: 048
  3. MESALAMINE [Concomitant]
     Active Substance: MESALAMINE
     Indication: Crohn^s disease
     Dosage: 3 CAPSULES A DAY
     Route: 048
  4. PANTOPRAZOLE [Concomitant]
     Active Substance: PANTOPRAZOLE
     Indication: Crohn^s disease
     Dosage: 1 CAPSULE A DAY
     Route: 048

REACTIONS (5)
  - Haemorrhage [Unknown]
  - Abdominal pain [Not Recovered/Not Resolved]
  - Product availability issue [Unknown]
  - Treatment delayed [Unknown]
  - Product supply issue [Unknown]

NARRATIVE: CASE EVENT DATE: 20221210
